FAERS Safety Report 20662959 (Version 3)
Quarter: 2022Q2

REPORT INFORMATION
  Report Type: Spontaneous
  Country: US (occurrence: US)
  Receive Date: 20220401
  Receipt Date: 20220408
  Transmission Date: 20220721
  Serious: Yes (Other)
  Sender: FDA-Public Use
  Company Number: US-drreddys-LIT/USA/22/0148226

PATIENT
  Age: 75 Year
  Sex: Female

DRUGS (3)
  1. GEMCITABINE [Suspect]
     Active Substance: GEMCITABINE
     Indication: Metastases to peritoneum
  2. OLAPARIB [Suspect]
     Active Substance: OLAPARIB
     Indication: Metastases to peritoneum
     Dosage: ONE AND HALF YEARS
  3. CARBOPLATIN [Suspect]
     Active Substance: CARBOPLATIN
     Indication: Metastases to peritoneum

REACTIONS (1)
  - Acute erythroid leukaemia [Unknown]
